FAERS Safety Report 4825787-5 (Version None)
Quarter: 2005Q4

REPORT INFORMATION
  Report Type: 
  Country: None (occurrence: None)
  Receive Date: 20051109
  Receipt Date: 20051024
  Transmission Date: 20060501
  Serious: Yes (Hospitalization)
  Sender: FDA-Public Use
  Company Number: 2005BI018825

PATIENT
  Age: 52 Year
  Sex: Female
  Weight: 75.7507 kg

DRUGS (14)
  1. AVONEX [Suspect]
     Indication: MULTIPLE SCLEROSIS
     Dosage: 30 UG; QW; IM
     Route: 030
     Dates: start: 20050826, end: 20050924
  2. AVONEX [Suspect]
     Indication: MULTIPLE SCLEROSIS
     Dosage: 30 UG; QW; IM
     Route: 030
     Dates: start: 20051021
  3. DILTIAZEM HCL [Concomitant]
  4. PLAVIX [Concomitant]
  5. PREVACID [Concomitant]
  6. PROZAC [Concomitant]
  7. TRIAMTERENE AND HYDROCHLOROTHIAZIDE [Concomitant]
  8. ISOSORBIDE [Concomitant]
  9. PRAVACHOL [Concomitant]
  10. NIACIN [Concomitant]
  11. LEVOXYL [Concomitant]
  12. ASPIRIN [Concomitant]
  13. ESTROVEN [Concomitant]
  14. FISH OIL [Concomitant]

REACTIONS (14)
  - APHASIA [None]
  - BLINDNESS TRANSIENT [None]
  - CHEST PAIN [None]
  - CONDITION AGGRAVATED [None]
  - DEAFNESS [None]
  - ELECTROCARDIOGRAM ABNORMAL [None]
  - EYE ROLLING [None]
  - HYPOAESTHESIA [None]
  - IMMOBILE [None]
  - MIGRAINE [None]
  - PAIN [None]
  - PARAESTHESIA [None]
  - PUPIL FIXED [None]
  - SYNCOPE [None]
